FAERS Safety Report 6021546-9 (Version None)
Quarter: 2008Q4

REPORT INFORMATION
  Report Type: 
  Country: None (occurrence: None)
  Receive Date: 20081229
  Receipt Date: 20081218
  Transmission Date: 20090506
  Serious: Yes (Other)
  Sender: FDA-Public Use
  Company Number: PHHY2008IT26159

PATIENT
  Sex: Female

DRUGS (2)
  1. ZOMETA [Suspect]
     Indication: METASTASES TO BONE
     Dosage: 4 MG EVERY 21 DAYS (12 INFUSIONS)
     Route: 042
     Dates: start: 20020723, end: 20030610
  2. TAMOXIFEN [Concomitant]
     Dosage: 20 MG
     Route: 048
     Dates: start: 20020702, end: 20020913

REACTIONS (5)
  - ABSCESS JAW [None]
  - BONE EROSION [None]
  - DENTAL OPERATION [None]
  - JAW FRACTURE [None]
  - OSTEONECROSIS [None]
